FAERS Safety Report 17855537 (Version 1)
Quarter: 2020Q2

REPORT INFORMATION
  Report Type: Other
  Country: US (occurrence: US)
  Receive Date: 20200603
  Receipt Date: 20200603
  Transmission Date: 20200714
  Serious: Yes (Hospitalization)
  Sender: FDA-Public Use
  Company Number: US-INNOGENIX, LLC-2085405

PATIENT
  Age: 66 Year
  Sex: Male

DRUGS (1)
  1. LABETALOL HYDROCHLORIDE. [Suspect]
     Active Substance: LABETALOL HYDROCHLORIDE
     Indication: HYPERTENSION
     Route: 048

REACTIONS (2)
  - Labile blood pressure [Unknown]
  - Orthostatic hypotension [Unknown]
